FAERS Safety Report 9303382 (Version 6)
Quarter: 2014Q2

REPORT INFORMATION
  Report Type: Spontaneous
  Country: FR (occurrence: None)
  Receive Date: 20130516
  Receipt Date: 20140522
  Transmission Date: 20141212
  Serious: Yes (Death, Life-Threatening, Hospitalization, Disabling)
  Sender: FDA-Public Use
  Company Number: FR-SEPTODONT-201301145

PATIENT
  Age: 36 Year
  Sex: Female
  Weight: 48 kg

DRUGS (6)
  1. XYLONOR [Suspect]
     Indication: LOCAL ANAESTHESIA
     Dosage: DENTAL
     Route: 004
     Dates: start: 20130410, end: 20130410
  2. DERINOX [Suspect]
     Indication: SINUSITIS
     Dosage: 1 DF 3 TIMES A DAY NASAL
     Route: 045
     Dates: start: 20130403
  3. TRINORDIOL, COMPRIME ENROBE (LEVONOGESTREL; ETHINYLESTRADIOL) [Concomitant]
  4. HYDROCORTISONE (HYDRCORTISONE) [Concomitant]
  5. SURGAM (TAPRPROFENOC ACID) [Concomitant]
  6. VERATRAN (CLOTIAZEPAM) [Concomitant]

REACTIONS (10)
  - Hypertensive crisis [None]
  - Hypotension [None]
  - Haemorrhagic stroke [None]
  - Loss of consciousness [None]
  - Cerebral haematoma [None]
  - Headache [None]
  - Coma [None]
  - Arterial disorder [None]
  - Apallic syndrome [None]
  - Hydrocephalus [None]
